FAERS Safety Report 24109698 (Version 1)
Quarter: 2024Q3

REPORT INFORMATION
  Report Type: Spontaneous
  Country: PE (occurrence: PE)
  Receive Date: 20240718
  Receipt Date: 20240718
  Transmission Date: 20241016
  Serious: Yes (Disabling, Other)
  Sender: PFIZER
  Company Number: PE-PFIZER INC-PV202400081435

PATIENT
  Age: 52 Year
  Sex: Male

DRUGS (1)
  1. LORLATINIB [Suspect]
     Active Substance: LORLATINIB
     Indication: Non-small cell lung cancer
     Dosage: 100 MG, 1X/DAY
     Dates: start: 20230801, end: 20240403

REACTIONS (5)
  - Cognitive disorder [Unknown]
  - Bradyphrenia [Not Recovered/Not Resolved]
  - Slow speech [Not Recovered/Not Resolved]
  - Irritability [Not Recovered/Not Resolved]
  - Neoplasm progression [Unknown]
